FAERS Safety Report 25216782 (Version 1)
Quarter: 2025Q2

REPORT INFORMATION
  Report Type: Spontaneous
  Country: IT (occurrence: IT)
  Receive Date: 20250419
  Receipt Date: 20250419
  Transmission Date: 20250717
  Serious: Yes (Other)
  Sender: AUROBINDO
  Company Number: IT-AUROBINDO-AUR-APL-2024-032326

PATIENT
  Age: 46 Year
  Sex: Female

DRUGS (3)
  1. TRANEXAMIC ACID [Suspect]
     Active Substance: TRANEXAMIC ACID
     Indication: Idiopathic angioedema
     Route: 065
  2. MONTELUKAST [Suspect]
     Active Substance: MONTELUKAST
     Indication: Idiopathic angioedema
     Route: 065
  3. PREDNISONE [Suspect]
     Active Substance: PREDNISONE
     Indication: Idiopathic angioedema
     Route: 065

REACTIONS (1)
  - Drug ineffective [Unknown]
